FAERS Safety Report 9400379 (Version 2)
Quarter: 2013Q3

REPORT INFORMATION
  Report Type: Spontaneous
  Country: US (occurrence: US)
  Receive Date: 20130715
  Receipt Date: 20130719
  Transmission Date: 20140515
  Serious: Yes (Death)
  Sender: FDA-Public Use
  Company Number: US-GILEAD-2013-0078966

PATIENT
  Age: 6 Year
  Sex: Female

DRUGS (2)
  1. LETAIRIS [Suspect]
     Indication: PULMONARY HYPERTENSION
     Route: 048
     Dates: start: 20111017, end: 20130705
  2. LETAIRIS [Suspect]
     Indication: HEART DISEASE CONGENITAL

REACTIONS (1)
  - Transplant failure [Fatal]
